FAERS Safety Report 6503581-7 (Version None)
Quarter: 2009Q4

REPORT INFORMATION
  Report Type: 
  Country: None (occurrence: None)
  Receive Date: 20091217
  Receipt Date: 20091208
  Transmission Date: 20100525
  Serious: Yes (Hospitalization, Other)
  Sender: FDA-Public Use
  Company Number: US-AMGEN-QUU379289

PATIENT
  Sex: Female

DRUGS (2)
  1. ENBREL [Suspect]
     Indication: PSORIATIC ARTHROPATHY
     Route: 058
     Dates: start: 20060612
  2. ENBREL [Suspect]
     Indication: PSORIASIS

REACTIONS (22)
  - CHONDROCALCINOSIS PYROPHOSPHATE [None]
  - CHONDROPATHY [None]
  - CONVULSION [None]
  - COUGH [None]
  - DIARRHOEA [None]
  - FALL [None]
  - FATIGUE [None]
  - HYPOAESTHESIA [None]
  - IMPAIRED HEALING [None]
  - INFECTED CYST [None]
  - INFLUENZA LIKE ILLNESS [None]
  - JOINT INJURY [None]
  - NAUSEA [None]
  - NIGHT SWEATS [None]
  - OROPHARYNGEAL PAIN [None]
  - PARAESTHESIA [None]
  - PSORIASIS [None]
  - PYREXIA [None]
  - RADIAL NERVE PALSY [None]
  - SOMNAMBULISM [None]
  - TOOTH ABSCESS [None]
  - TOOTH FRACTURE [None]
